FAERS Safety Report 5623137-8 (Version None)
Quarter: 2008Q1

REPORT INFORMATION
  Report Type: 
  Country: None (occurrence: None)
  Receive Date: 20080212
  Receipt Date: 20080207
  Transmission Date: 20080703
  Serious: Yes (Life-Threatening)
  Sender: FDA-Public Use
  Company Number: B0507258A

PATIENT
  Age: 22 Year
  Sex: Male

DRUGS (3)
  1. SERETIDE [Suspect]
     Indication: OBSTRUCTION
     Route: 055
     Dates: start: 20080103, end: 20080104
  2. HELEX [Concomitant]
     Dates: start: 20070601, end: 20071201
  3. VITAMIN B [Concomitant]
     Dates: start: 20070601, end: 20071201

REACTIONS (5)
  - AGITATION [None]
  - CHEST DISCOMFORT [None]
  - MENTAL DISORDER [None]
  - NERVOUSNESS [None]
  - PALPITATIONS [None]
